FAERS Safety Report 15005647 (Version 2)
Quarter: 2018Q2

REPORT INFORMATION
  Report Type: Report from Study
  Country: None (occurrence: DE)
  Receive Date: 20180613
  Receipt Date: 20180621
  Transmission Date: 20180711
  Serious: Yes (Other)
  Sender: FDA-Public Use
  Company Number: DE-BAUSCH-BL-2018-016577

PATIENT
  Age: 56 Year
  Sex: Female

DRUGS (5)
  1. NIVOLUMAB BMS [Suspect]
     Active Substance: NIVOLUMAB
     Dosage: CUMULATIVE DOSE 72 MG
     Route: 065
  2. NIVOLUMAB BMS [Suspect]
     Active Substance: NIVOLUMAB
     Indication: MALIGNANT MELANOMA
     Dosage: 72 MG PER 3 WEEKS
     Route: 042
     Dates: start: 20170517, end: 20170607
  3. YERVOY [Suspect]
     Active Substance: IPILIMUMAB
     Indication: MALIGNANT MELANOMA
     Dosage: 1 DOSAGE FORM PER 3 WEEKS
     Route: 042
     Dates: start: 20170517, end: 20170607
  4. YERVOY [Suspect]
     Active Substance: IPILIMUMAB
     Dosage: CUMULATIVE DOSE: 1 DOSAGE FORM
     Route: 065
  5. PREDNISOLONE. [Suspect]
     Active Substance: PREDNISOLONE
     Indication: PRODUCT USED FOR UNKNOWN INDICATION
     Route: 065

REACTIONS (1)
  - Pneumonitis [Recovered/Resolved]

NARRATIVE: CASE EVENT DATE: 20170629
